FAERS Safety Report 10931624 (Version 1)
Quarter: 2015Q1

REPORT INFORMATION
  Report Type: Spontaneous
  Country: US (occurrence: US)
  Receive Date: 20150319
  Receipt Date: 20150319
  Transmission Date: 20150721
  Serious: No
  Sender: FDA-Public Use
  Company Number: US-BAUSCH-BL-2014-004896

PATIENT
  Age: 47 Year
  Sex: Female

DRUGS (1)
  1. RETIN-A [Suspect]
     Active Substance: TRETINOIN
     Indication: THERAPEUTIC SKIN CARE TOPICAL
     Dosage: APPLIED AT BEDTIME
     Route: 061
     Dates: start: 201408

REACTIONS (5)
  - Application site swelling [Unknown]
  - Application site erythema [Unknown]
  - Off label use [Unknown]
  - Application site mass [Unknown]
  - Application site pain [Unknown]

NARRATIVE: CASE EVENT DATE: 201408
